FAERS Safety Report 6050061-1 (Version None)
Quarter: 2009Q1

REPORT INFORMATION
  Report Type: 
  Country: None (occurrence: None)
  Receive Date: 20090121
  Receipt Date: 20090107
  Transmission Date: 20090719
  Serious: Yes (Hospitalization)
  Sender: FDA-Public Use
  Company Number: SPI200900007

PATIENT
  Sex: Female

DRUGS (1)
  1. AMITIZA [Suspect]
     Dosage: BID, ORAL
     Route: 048

REACTIONS (2)
  - DRUG ADMINISTRATION ERROR [None]
  - HEADACHE [None]
